FAERS Safety Report 17443906 (Version 1)
Quarter: 2020Q1

REPORT INFORMATION
  Report Type: Spontaneous
  Country: US (occurrence: US)
  Receive Date: 20200221
  Receipt Date: 20200221
  Transmission Date: 20200409
  Serious: No
  Sender: FDA-Public Use
  Company Number: US-CELGENEUS-USA-20200205957

PATIENT
  Age: 86 Year
  Sex: Female
  Weight: 62.65 kg

DRUGS (8)
  1. LATANOPROST. [Concomitant]
     Active Substance: LATANOPROST
     Indication: EYE DISORDER
     Route: 047
  2. ASPIRIN. [Concomitant]
     Active Substance: ASPIRIN
     Indication: ROUTINE HEALTH MAINTENANCE
     Route: 065
  3. FOLIC ACID. [Concomitant]
     Active Substance: FOLIC ACID
     Indication: VITAMIN SUPPLEMENTATION
     Route: 065
  4. VITAMIN B COMPLEX [Concomitant]
     Active Substance: CYANOCOBALAMIN\DEXPANTHENOL\NIACINAMIDE\PYRIDOXINE HYDROCHLORIDE\RIBOFLAVIN 5^-PHOSPHATE SODIUM\THIAMINE HYDROCHLORIDE\VITAMIN B COMPLEX
     Indication: VITAMIN SUPPLEMENTATION
     Route: 065
  5. DORZOLAMIDE [Concomitant]
     Active Substance: DORZOLAMIDE
     Indication: EYE DISORDER
     Route: 047
  6. VALACYCLOVIR HCL [Concomitant]
     Active Substance: VALACYCLOVIR HYDROCHLORIDE
     Indication: ANTIVIRAL TREATMENT
     Route: 065
  7. AMLODIPINE BE [Concomitant]
     Indication: HYPERTENSION
     Route: 065
  8. REVLIMID [Suspect]
     Active Substance: LENALIDOMIDE
     Indication: MYELODYSPLASTIC SYNDROME
     Dosage: 10 MILLIGRAM
     Route: 048
     Dates: start: 20200122

REACTIONS (1)
  - Head discomfort [Unknown]

NARRATIVE: CASE EVENT DATE: 20200217
